FAERS Safety Report 24820553 (Version 1)
Quarter: 2025Q1

REPORT INFORMATION
  Report Type: Report from Study
  Country: ES (occurrence: ES)
  Receive Date: 20250108
  Receipt Date: 20250108
  Transmission Date: 20250408
  Serious: Yes (Death, Life-Threatening, Hospitalization, Other)
  Sender: TEVA
  Company Number: None

PATIENT
  Age: 47 Year
  Sex: Male

DRUGS (4)
  1. DOCETAXEL [Suspect]
     Active Substance: DOCETAXEL
     Indication: Product used for unknown indication
     Route: 042
     Dates: start: 20230424, end: 20230522
  2. DEXAMETHASONE [Suspect]
     Active Substance: DEXAMETHASONE
     Indication: Product used for unknown indication
     Dosage: 4MG/DAY: DEXAMETHASONE (722A)
     Route: 048
     Dates: start: 20230310, end: 20230424
  3. DEXAMETHASONE [Suspect]
     Active Substance: DEXAMETHASONE
     Indication: Product used for unknown indication
     Dosage: DEXAMETHASONE (722A)
     Route: 048
     Dates: start: 20230424, end: 20230529
  4. GEMCITABINE [Suspect]
     Active Substance: GEMCITABINE
     Indication: Alveolar soft part sarcoma
     Route: 042
     Dates: start: 20230424, end: 20230522

REACTIONS (2)
  - Pancytopenia [Fatal]
  - Respiratory tract infection [Fatal]

NARRATIVE: CASE EVENT DATE: 20230529
